FAERS Safety Report 5431473-3 (Version None)
Quarter: 2007Q3

REPORT INFORMATION
  Report Type: 
  Country: None (occurrence: None)
  Receive Date: 20070830
  Receipt Date: 20070706
  Transmission Date: 20080115
  Serious: No
  Sender: FDA-Public Use
  Company Number: A0662192A

PATIENT
  Age: 47 Year
  Sex: Male

DRUGS (5)
  1. WELLBUTRIN XL [Suspect]
     Indication: DEPRESSION
     Dosage: 150MG PER DAY
     Route: 048
     Dates: start: 20070121
  2. LIPITOR [Concomitant]
  3. ANDROGEL [Concomitant]
  4. ALLEGRA [Concomitant]
  5. NASACORT [Concomitant]

REACTIONS (4)
  - ERYTHEMA [None]
  - FATIGUE [None]
  - FLUSHING [None]
  - SOMNOLENCE [None]
